FAERS Safety Report 8010525-8 (Version None)
Quarter: 2011Q4

REPORT INFORMATION
  Report Type: 
  Country: None (occurrence: None)
  Receive Date: 20111228
  Receipt Date: 20111216
  Transmission Date: 20120403
  Serious: Yes (Hospitalization, Other)
  Sender: FDA-Public Use
  Company Number: PHHY2011BR95658

PATIENT
  Sex: Female

DRUGS (1)
  1. EXFORGE [Suspect]
     Indication: HYPERTENSION
     Dosage: 1 DF DAILY

REACTIONS (8)
  - LUNG INFECTION [None]
  - NASOPHARYNGITIS [None]
  - OEDEMA PERIPHERAL [None]
  - INFLUENZA [None]
  - GAIT DISTURBANCE [None]
  - PNEUMONIA [None]
  - PAIN IN EXTREMITY [None]
  - VARICOPHLEBITIS [None]
